FAERS Safety Report 7820400-7 (Version None)
Quarter: 2011Q4

REPORT INFORMATION
  Report Type: 
  Country: None (occurrence: None)
  Receive Date: 20111018
  Receipt Date: 20111006
  Transmission Date: 20120403
  Serious: Yes (Hospitalization)
  Sender: FDA-Public Use
  Company Number: JP-UCBSA-035422

PATIENT
  Age: 64 Year
  Sex: Female

DRUGS (11)
  1. CERTOLIZUMAB PEGOL [Suspect]
     Indication: RHEUMATOID ARTHRITIS
     Route: 058
     Dates: start: 20091030, end: 20110101
  2. CLARITHROMYCIN [Concomitant]
     Dosage: DAILY DOSE:200MG
     Dates: start: 20090612
  3. CERTOLIZUMAB PEGOL [Suspect]
     Dosage: UNKNOWN DOSE
     Route: 058
     Dates: start: 20090710, end: 20091016
  4. LOSARTAN POTASSIUM/HYDROCHLOROTHIAZIDE [Concomitant]
     Dosage: 1 TAB DAILY
     Dates: start: 20090313
  5. AMBROXOL HYDROCHLORIDE [Concomitant]
     Dosage: DAILY DOSE :45MG
     Dates: start: 20090904
  6. LOSARTAN POTASSIUM [Concomitant]
     Dosage: DAILY DOSE: 25MG
     Dates: start: 20090612
  7. ROSUVASTATIN CALCIUM [Concomitant]
     Dosage: DAILY DOSE: 5MG
     Dates: start: 20081017
  8. DIPYRIDAMOLE [Concomitant]
     Dosage: DAILY DOSE: 300MG
     Dates: start: 20100806
  9. KETOPROFEN [Concomitant]
     Dosage: ADEQUATE DOSE
     Dates: start: 20081001
  10. SULFASALAZINE [Concomitant]
     Dosage: DAILY DOSE:1000MG
     Dates: start: 20080722
  11. KETOTIFEN FUMARATE [Concomitant]
     Dosage: ADEQUATE DOSE
     Dates: start: 20110304

REACTIONS (3)
  - PNEUMONIA [None]
  - ARTHRALGIA [None]
  - BRONCHOPNEUMONIA [None]
